FAERS Safety Report 5075232-2 (Version None)
Quarter: 2006Q3

REPORT INFORMATION
  Report Type: 
  Country: None (occurrence: None)
  Receive Date: 20060809
  Receipt Date: 20060714
  Transmission Date: 20061208
  Serious: Yes (Other)
  Sender: FDA-Public Use
  Company Number: PHEH2006US09077

PATIENT
  Age: 53 Year
  Sex: Female

DRUGS (8)
  1. ZOMETA [Suspect]
     Indication: METASTASES TO BONE
     Dosage: 4MG Q3-4 WKS
     Dates: start: 20041206
  2. XELODA [Concomitant]
     Indication: BREAST CANCER
     Dosage: 2500MG BID
     Dates: start: 20050505
  3. AROMASIN [Concomitant]
     Indication: BREAST CANCER
     Dosage: 25MG QD
  4. LASIX [Concomitant]
     Indication: OEDEMA
     Dosage: 40GM QD PRN
     Dates: start: 20050701
  5. SPIRONOLACTONE [Concomitant]
     Dosage: 80MG QD
     Dates: start: 20050701
  6. NORVASC [Concomitant]
     Indication: HYPERTENSION
     Dosage: 5MG QD
     Dates: start: 20040701
  7. TOPROL-XL [Concomitant]
     Indication: HYPERTENSION
     Dosage: 25MG QD
     Dates: start: 20050501
  8. GLUCOSAMINE [Concomitant]

REACTIONS (7)
  - BONE DEBRIDEMENT [None]
  - BONE DISORDER [None]
  - IMPAIRED HEALING [None]
  - OSTEONECROSIS [None]
  - PERIODONTAL OPERATION [None]
  - SINUSITIS [None]
  - TOOTH EXTRACTION [None]
